FAERS Safety Report 5032863-3 (Version None)
Quarter: 2006Q2

REPORT INFORMATION
  Report Type: 
  Country: None (occurrence: None)
  Receive Date: 20060622
  Receipt Date: 20060529
  Transmission Date: 20061013
  Serious: Yes (Hospitalization, Disabling)
  Sender: FDA-Public Use
  Company Number: JP-JPN-A200601761

PATIENT
  Age: 46 Year
  Sex: Male
  Weight: 65 kg

DRUGS (19)
  1. PAXIL [Suspect]
     Indication: DEPRESSION
     Route: 048
     Dates: start: 20060207, end: 20060513
  2. ELIETEN [Suspect]
     Indication: DEPRESSION
     Dosage: 5MG THREE TIMES PER DAY
     Route: 048
     Dates: start: 20060207, end: 20060513
  3. MEDEPOLIN [Concomitant]
     Indication: DEPRESSION
     Route: 048
  4. HIZULEN S [Concomitant]
     Indication: DEPRESSION
     Dosage: 1.5G PER DAY
     Route: 048
     Dates: start: 20060207, end: 20060513
  5. PAXIL [Concomitant]
     Route: 045
     Dates: start: 20060524
  6. MEDEPOLIN [Concomitant]
     Route: 045
  7. HORIZON [Concomitant]
     Indication: DEPRESSION
     Dosage: 10ML PER DAY
     Route: 030
     Dates: start: 20060522, end: 20060522
  8. SERENACE [Concomitant]
     Indication: DEPRESSION
     Route: 050
     Dates: start: 20060522, end: 20060524
  9. AKINETON [Concomitant]
     Indication: DEPRESSION
     Dosage: 5MG TWICE PER DAY
     Route: 030
     Dates: start: 20060522, end: 20060523
  10. DANTRIUM [Concomitant]
     Route: 050
     Dates: start: 20060523
  11. PERORIC [Concomitant]
     Route: 045
     Dates: start: 20060523
  12. UNKNOWN [Concomitant]
     Dosage: 2G TWICE PER DAY
     Dates: start: 20060523
  13. FLUID [Concomitant]
     Dates: start: 20060523
  14. ADEFURONIC [Concomitant]
     Dates: start: 20060523
  15. SALINE [Concomitant]
     Dates: start: 20060603
  16. HORIZON [Concomitant]
     Route: 030
     Dates: start: 20060522
  17. DEXTROSE 5% [Concomitant]
     Dates: start: 20060523
  18. UNKNOWN [Concomitant]
     Dates: start: 20060523
  19. THIAMINE HCL [Concomitant]
     Dates: start: 20060523

REACTIONS (20)
  - ABULIA [None]
  - ANOREXIA [None]
  - ANXIETY [None]
  - BODY TEMPERATURE INCREASED [None]
  - BRADYKINESIA [None]
  - CREATINE PHOSPHOKINASE DECREASED [None]
  - DECREASED ACTIVITY [None]
  - DECREASED APPETITE [None]
  - DEPRESSED LEVEL OF CONSCIOUSNESS [None]
  - DEPRESSION [None]
  - DEPRESSIVE SYMPTOM [None]
  - DYSPHAGIA [None]
  - DYSPNOEA [None]
  - HYPERHIDROSIS [None]
  - IRRITABILITY [None]
  - MALAISE [None]
  - MUSCULOSKELETAL STIFFNESS [None]
  - NEUROLEPTIC MALIGNANT SYNDROME [None]
  - TREMOR [None]
  - URINE OUTPUT DECREASED [None]
